FAERS Safety Report 25425636 (Version 1)
Quarter: 2025Q2

REPORT INFORMATION
  Report Type: Report from Study
  Country: US (occurrence: US)
  Receive Date: 20250611
  Receipt Date: 20250611
  Transmission Date: 20250716
  Serious: Yes (Hospitalization)
  Sender: ABBVIE
  Company Number: US-ABBVIE-6319100

PATIENT
  Age: 59 Year
  Sex: Female

DRUGS (1)
  1. CREON [Suspect]
     Active Substance: PANCRELIPASE AMYLASE\PANCRELIPASE LIPASE\PANCRELIPASE PROTEASE
     Indication: Product used for unknown indication
     Route: 048
     Dates: start: 2014

REACTIONS (3)
  - Ulcer [Recovering/Resolving]
  - Haematemesis [Recovering/Resolving]
  - Product lot number issue [Unknown]

NARRATIVE: CASE EVENT DATE: 20250301
